FAERS Safety Report 5355819-X (Version None)
Quarter: 2007Q2

REPORT INFORMATION
  Report Type: 
  Country: None (occurrence: None)
  Receive Date: 20070611
  Receipt Date: 20070611
  Transmission Date: 20071010
  Serious: Yes (Hospitalization, Other)
  Sender: FDA-Public Use
  Company Number: None

PATIENT
  Sex: Female
  Weight: 55.3388 kg

DRUGS (14)
  1. IRESSA [Suspect]
     Indication: METASTATIC RENAL CELL CARCINOMA
     Dosage: 250 MG PO DAILY
     Route: 048
     Dates: start: 20070129, end: 20070606
  2. PEG-INTRON [Suspect]
     Indication: METASTATIC RENAL CELL CARCINOMA
     Dosage: 4.0 GU/KG/WK - SQ
     Route: 058
     Dates: start: 20070129, end: 20070419
  3. LORTAB [Concomitant]
  4. COMPAZINE [Concomitant]
  5. AZITHROMYCIN [Concomitant]
  6. MEGACE [Concomitant]
  7. QUININE SULFATE [Concomitant]
  8. LAMICTAL [Concomitant]
  9. PERVACID [Concomitant]
  10. RISPERDAL [Concomitant]
  11. DEPAKOTE [Concomitant]
  12. REMERON [Concomitant]
  13. CYMBALTA [Concomitant]
  14. CLARITIN [Concomitant]

REACTIONS (7)
  - BLOOD PRESSURE DECREASED [None]
  - DISEASE PROGRESSION [None]
  - DRUG TOXICITY [None]
  - DYSPNOEA [None]
  - HYPOTENSION [None]
  - HYPOXIA [None]
  - OEDEMA PERIPHERAL [None]
